FAERS Safety Report 10936593 (Version 1)
Quarter: 2015Q1

REPORT INFORMATION
  Report Type: Spontaneous
  Country: US (occurrence: None)
  Receive Date: 20150129
  Receipt Date: 20150129
  Transmission Date: 20150721
  Serious: No
  Sender: FDA-Public Use
  Company Number: A-NJ2014-106454

PATIENT
  Age: 88 Year
  Sex: Male

DRUGS (5)
  1. RIOCIGUAT (RIOCIGUAT) [Concomitant]
     Active Substance: RIOCIGUAT
  2. OPSUMIT [Suspect]
     Active Substance: MACITENTAN
     Indication: OBSTRUCTIVE AIRWAYS DISORDER
     Route: 048
     Dates: start: 20140612, end: 20141010
  3. TRACLEER [Suspect]
     Active Substance: BOSENTAN\BOSENTAN MONOHYDRATE
     Indication: OBSTRUCTIVE AIRWAYS DISORDER
     Route: 048
  4. WARFARIN (WARFARIN POTASSIUM) [Concomitant]
  5. COUMADIN [Concomitant]
     Active Substance: WARFARIN SODIUM

REACTIONS (4)
  - Nasal congestion [None]
  - Asthenia [None]
  - Epistaxis [None]
  - Mouth breathing [None]
